FAERS Safety Report 7809582-0 (Version None)
Quarter: 2011Q4

REPORT INFORMATION
  Report Type: 
  Country: None (occurrence: None)
  Receive Date: 20111012
  Receipt Date: 20111007
  Transmission Date: 20120403
  Serious: Yes (Other)
  Sender: FDA-Public Use
  Company Number: PHHY2011FR83231

PATIENT
  Sex: Female
  Weight: 43 kg

DRUGS (4)
  1. UVEDOSE [Concomitant]
     Dosage: UNK UKN, UNK
  2. ZOLEDRONOC ACID [Suspect]
     Indication: OSTEOPOROSIS
     Dosage: 5 MG, ANUALLY
     Route: 042
     Dates: start: 20090101
  3. FIXICAL [Concomitant]
     Dosage: UNK UKN, UNK
  4. ZOLEDRONOC ACID [Suspect]
     Dosage: 5 MG, ANUALLY
     Route: 042
     Dates: start: 20110101

REACTIONS (1)
  - OSTEOLYSIS [None]
